FAERS Safety Report 4912013-1 (Version None)
Quarter: 2006Q1

REPORT INFORMATION
  Report Type: 
  Country: None (occurrence: None)
  Receive Date: 20060215
  Receipt Date: 20060109
  Transmission Date: 20060701
  Serious: Yes (Death, Life-Threatening, Hospitalization, Other)
  Sender: FDA-Public Use
  Company Number: PHNU2006DE00477

PATIENT
  Age: 81 Year
  Sex: Male
  Weight: 75 kg

DRUGS (4)
  1. GLEEVEC [Suspect]
     Indication: CHRONIC MYELOID LEUKAEMIA
     Dosage: 400 MG, QD
     Route: 048
     Dates: start: 20051001, end: 20051201
  2. ALLOPURINOL [Suspect]
     Dosage: 300 MG, QD
     Route: 048
  3. CONCOR [Concomitant]
     Dosage: 5 MG, QD
     Route: 048
  4. LITALIR [Concomitant]
     Dosage: 400 MG, QD
     Route: 048
     Dates: start: 20040401

REACTIONS (12)
  - ANAEMIA [None]
  - BLOOD CREATININE INCREASED [None]
  - BLOOD UREA INCREASED [None]
  - DIALYSIS [None]
  - EOSINOPHILIA [None]
  - HAEMOGLOBIN DECREASED [None]
  - OLIGURIA [None]
  - PLATELET COUNT DECREASED [None]
  - RASH [None]
  - RENAL FAILURE [None]
  - RENAL FAILURE ACUTE [None]
  - THROMBOCYTOPENIA [None]
